FAERS Safety Report 24762543 (Version 13)
Quarter: 2025Q3

REPORT INFORMATION
  Report Type: Report from Study
  Country: US (occurrence: US)
  Receive Date: 20241221
  Receipt Date: 20250922
  Transmission Date: 20251020
  Serious: Yes (Other)
  Sender: IPSEN BIOPHARMACEUTICALS, INC.
  Company Number: US-IPSEN Group, Research and Development-2024-18250

PATIENT
  Age: 61 Year
  Sex: Female

DRUGS (4)
  1. DYSPORT [Suspect]
     Active Substance: ABOBOTULINUMTOXINA
     Indication: Muscle spasticity
     Route: 030
     Dates: start: 20240501, end: 20240501
  2. DYSPORT [Suspect]
     Active Substance: ABOBOTULINUMTOXINA
     Route: 030
     Dates: start: 20240605, end: 20240605
  3. DYSPORT [Suspect]
     Active Substance: ABOBOTULINUMTOXINA
     Route: 030
     Dates: start: 20241127, end: 20241127
  4. HEPATITIS B VIRUS VACCINE [Concomitant]
     Active Substance: HEPATITIS B VIRUS VACCINE
     Dates: start: 202412, end: 202412

REACTIONS (17)
  - Monoplegia [Recovered/Resolved with Sequelae]
  - Urinary tract infection [Unknown]
  - Asthenia [Recovered/Resolved with Sequelae]
  - Feeling abnormal [Not Recovered/Not Resolved]
  - Fatigue [Not Recovered/Not Resolved]
  - Asthenia [Not Recovered/Not Resolved]
  - Hypoaesthesia [Unknown]
  - Off label use [Unknown]
  - Incontinence [Unknown]
  - Therapeutic response shortened [Unknown]
  - Limb discomfort [Not Recovered/Not Resolved]
  - Incorrect dose administered [Unknown]
  - Muscle atrophy [Not Recovered/Not Resolved]
  - Musculoskeletal stiffness [Not Recovered/Not Resolved]
  - Therapeutic product effect prolonged [Unknown]
  - Loss of personal independence in daily activities [Unknown]
  - Radial nerve palsy [Not Recovered/Not Resolved]

NARRATIVE: CASE EVENT DATE: 20240501
